FAERS Safety Report 13486603 (Version 1)
Quarter: 2017Q2

REPORT INFORMATION
  Report Type: Spontaneous
  Country: US (occurrence: US)
  Receive Date: 20170426
  Receipt Date: 20170426
  Transmission Date: 20170830
  Serious: Yes (Death, Hospitalization)
  Sender: FDA-Public Use
  Company Number: US-KERYX BIOPHARMACEUTICALS, INC.-2017US002761

PATIENT
  Age: 66 Year
  Sex: Male

DRUGS (1)
  1. AURYXIA [Suspect]
     Active Substance: TETRAFERRIC TRICITRATE DECAHYDRATE
     Indication: PRODUCT USED FOR UNKNOWN INDICATION
     Dosage: 8 G (8 TABLETS), DAILY
     Dates: start: 20170309, end: 20170413

REACTIONS (2)
  - Road traffic accident [Fatal]
  - Intracranial aneurysm [Fatal]

NARRATIVE: CASE EVENT DATE: 20170412
